FAERS Safety Report 5567646-9 (Version None)
Quarter: 2007Q4

REPORT INFORMATION
  Report Type: 
  Country: None (occurrence: None)
  Receive Date: 20071219
  Receipt Date: 20071204
  Transmission Date: 20080405
  Serious: Yes (Other)
  Sender: FDA-Public Use
  Company Number: FR-PFIZER INC-2007097414

PATIENT
  Sex: Female
  Weight: 45 kg

DRUGS (9)
  1. LYRICA [Suspect]
     Indication: NEURALGIA
  2. TRAMADOL HCL [Interacting]
  3. LEVOTHYROX [Concomitant]
  4. OGAST [Concomitant]
  5. TAHOR [Concomitant]
  6. RIVOTRIL [Concomitant]
  7. STILNOX [Concomitant]
  8. VALSARTAN AND HYDROCHLOROTHIAZIDE [Concomitant]
  9. NEURONTIN [Concomitant]

REACTIONS (4)
  - CONFUSIONAL STATE [None]
  - DEPRESSION [None]
  - DRUG INTERACTION [None]
  - HALLUCINATION [None]
